FAERS Safety Report 4660745-5 (Version None)
Quarter: 2005Q2

REPORT INFORMATION
  Report Type: 
  Country: None (occurrence: None)
  Receive Date: 20050511
  Receipt Date: 20050502
  Transmission Date: 20051028
  Serious: Yes (Hospitalization, Other)
  Sender: FDA-Public Use
  Company Number: 2005BI003170

PATIENT
  Sex: Male

DRUGS (6)
  1. AVONEX [Suspect]
     Indication: MULTIPLE SCLEROSIS
     Dosage: 30UG; QW; IM
     Route: 030
  2. LOSARTAN POTASSIUM [Concomitant]
  3. FOSAMAX [Concomitant]
  4. KLONOPIN [Concomitant]
  5. DEPO-TESTOSTERONE [Concomitant]
  6. PROZAC [Concomitant]

REACTIONS (8)
  - CONDITION AGGRAVATED [None]
  - IMMUNOSUPPRESSION [None]
  - IMPAIRED HEALING [None]
  - INFECTED SKIN ULCER [None]
  - LIMB INJURY [None]
  - LYMPHOEDEMA [None]
  - MULTIPLE SCLEROSIS [None]
  - VENOUS STASIS [None]
